FAERS Safety Report 26119661 (Version 1)
Quarter: 2025Q4

REPORT INFORMATION
  Report Type: Report from Study
  Country: CL (occurrence: CL)
  Receive Date: 20251204
  Receipt Date: 20251204
  Transmission Date: 20260118
  Serious: Yes (Hospitalization)
  Sender: JOHNSON AND JOHNSON
  Company Number: CL-JNJFOC-20251200913

PATIENT
  Age: 50 Year
  Sex: Male

DRUGS (1)
  1. SIMPONI [Suspect]
     Active Substance: GOLIMUMAB
     Indication: Psoriatic arthropathy
     Dosage: LAST ADHERENCE RECORDED ON 30-JUL-2025, LAST DOSE NOT ADMINISTERED
     Route: 058
     Dates: start: 20230531

REACTIONS (3)
  - Metastasis [Unknown]
  - Illness [Unknown]
  - Biopsy kidney [Unknown]

NARRATIVE: CASE EVENT DATE: 20251101
